FAERS Safety Report 9099734 (Version 1)
Quarter: 2013Q1

REPORT INFORMATION
  Report Type: Spontaneous
  Country: US (occurrence: US)
  Receive Date: 20130214
  Receipt Date: 20130214
  Transmission Date: 20140127
  Serious: Yes (Hospitalization, Other)
  Sender: FDA-Public Use
  Company Number: US-ELI_LILLY_AND_COMPANY-US201302001341

PATIENT
  Sex: Female

DRUGS (9)
  1. EFFIENT [Suspect]
     Indication: STENT PLACEMENT
     Dosage: 10 MG, QD
     Dates: start: 201207
  2. EFFIENT [Suspect]
     Dosage: 10 MG, QD
  3. BABY ASPIRIN [Concomitant]
     Dosage: UNK, EACH EVENING
  4. ATENOLOL [Concomitant]
     Indication: HYPERTENSION
     Dosage: 25 MG, QD
  5. LISINOPRIL AND HYDROCHLOROTHIAZIDE [Concomitant]
     Indication: HYPERTENSION
     Dosage: UNK, QD
  6. NITROGLYCERIN [Concomitant]
     Dosage: UNK, PRN
  7. RESTORIL [Concomitant]
     Indication: INSOMNIA
     Dosage: 30 MG, EACH EVENING
  8. SIMVASTATIN [Concomitant]
     Dosage: 20 MG, QD
  9. DILTIAZEM [Concomitant]
     Dosage: 120 MG, QD

REACTIONS (9)
  - Coronary artery occlusion [Not Recovered/Not Resolved]
  - Coronary arterial stent insertion [Not Recovered/Not Resolved]
  - Dyspnoea [Not Recovered/Not Resolved]
  - Back pain [Not Recovered/Not Resolved]
  - Oral pain [Not Recovered/Not Resolved]
  - Tooth disorder [Not Recovered/Not Resolved]
  - Gingival inflammation [Not Recovered/Not Resolved]
  - Muscle tightness [Not Recovered/Not Resolved]
  - Expired drug administered [Not Recovered/Not Resolved]
